FAERS Safety Report 22186988 (Version 1)
Quarter: 2023Q2

REPORT INFORMATION
  Report Type: Spontaneous
  Country: US (occurrence: US)
  Receive Date: 20230407
  Receipt Date: 20230407
  Transmission Date: 20230722
  Serious: Yes (Other)
  Sender: FDA-Public Use
  Company Number: US-002147023-NVSC2023US080615

PATIENT

DRUGS (1)
  1. MYCOPHENOLATE MOFETIL [Suspect]
     Active Substance: MYCOPHENOLATE MOFETIL
     Indication: Crohn^s disease
     Dosage: UNK (A DOSE RANGING FROM 500-2000 MG), BID
     Route: 065

REACTIONS (2)
  - Supraventricular tachycardia [Unknown]
  - Product use in unapproved indication [Unknown]
